FAERS Safety Report 8525790-8 (Version None)
Quarter: 2012Q3

REPORT INFORMATION
  Report Type: 
  Country: None (occurrence: None)
  Receive Date: 20120720
  Receipt Date: 20120716
  Transmission Date: 20120928
  Serious: Yes (Hospitalization, Disabling, Other)
  Sender: FDA-Public Use
  Company Number: US-009507513-1201USA02902

PATIENT

DRUGS (3)
  1. FOSAMAX [Suspect]
     Indication: OSTEOPENIA
     Dosage: 70 MG, QW
     Route: 048
     Dates: start: 20011001, end: 20080603
  2. FOSAMAX [Suspect]
     Dosage: 70 MG, QW
     Route: 048
     Dates: start: 20080604, end: 20100111
  3. FOSAMAX [Suspect]
     Dosage: 35 MG, UNK
     Dates: start: 20011017

REACTIONS (25)
  - FEMUR FRACTURE [None]
  - DEEP VEIN THROMBOSIS [None]
  - HAEMORRHOIDS [None]
  - FATIGUE [None]
  - COAGULOPATHY [None]
  - BRADYCARDIA [None]
  - BREAST ABSCESS [None]
  - DIVERTICULUM INTESTINAL [None]
  - ATROPHIC VULVOVAGINITIS [None]
  - IRRITABLE BOWEL SYNDROME [None]
  - SKIN LESION [None]
  - ALOPECIA [None]
  - THROMBOSIS [None]
  - ROAD TRAFFIC ACCIDENT [None]
  - COLONIC POLYP [None]
  - LOW TURNOVER OSTEOPATHY [None]
  - FOOT DEFORMITY [None]
  - HYPERLIPIDAEMIA [None]
  - TOOTH DISORDER [None]
  - CONTUSION [None]
  - PAIN IN EXTREMITY [None]
  - GINGIVAL BLEEDING [None]
  - ANXIETY [None]
  - DEPRESSION [None]
  - HAIR GROWTH ABNORMAL [None]
